FAERS Safety Report 11092619 (Version 1)
Quarter: 2015Q2

REPORT INFORMATION
  Report Type: Spontaneous
  Country: ES (occurrence: None)
  Receive Date: 20150504
  Receipt Date: 20150504
  Transmission Date: 20150821
  Serious: Yes (Hospitalization, Other)
  Sender: FDA-Public Use
  Company Number: ES2015GSK056391

PATIENT
  Age: 71 Year
  Sex: Male

DRUGS (2)
  1. AMIODARONE (AMIODARONE) [Suspect]
     Active Substance: AMIODARONE
     Indication: ATRIAL FIBRILLATION
  2. DIGOXINA (DIGOXIN) UNKNOWN [Suspect]
     Active Substance: DIGOXIN
     Indication: ATRIAL FIBRILLATION

REACTIONS (5)
  - Ventricular fibrillation [None]
  - Ventricular flutter [None]
  - Cardiomyopathy [None]
  - Toxicity to various agents [None]
  - Cardio-respiratory arrest [None]
